FAERS Safety Report 18883127 (Version 1)
Quarter: 2021Q1

REPORT INFORMATION
  Report Type: Spontaneous
  Country: US (occurrence: US)
  Receive Date: 20210211
  Receipt Date: 20210211
  Transmission Date: 20210420
  Serious: No
  Sender: FDA-Public Use
  Company Number: US-009507513-2101USA012958

PATIENT
  Age: 43 Year
  Sex: Female

DRUGS (2)
  1. ALBUTEROL SULFATE. [Suspect]
     Active Substance: ALBUTEROL SULFATE
     Indication: ASTHMA
     Dosage: 2 INHALATIONS COUPLE TIMES A DAY WHEN NECESSARY
     Dates: start: 202101
  2. ALVESCO [Concomitant]
     Active Substance: CICLESONIDE
     Dosage: PREVENTER INHALER

REACTIONS (3)
  - Product dose omission issue [Unknown]
  - Poor quality device used [Unknown]
  - Product delivery mechanism issue [Unknown]

NARRATIVE: CASE EVENT DATE: 20210124
